FAERS Safety Report 5691091-9 (Version None)
Quarter: 2008Q2

REPORT INFORMATION
  Report Type: 
  Country: None (occurrence: None)
  Receive Date: 20080401
  Receipt Date: 20080327
  Transmission Date: 20081010
  Serious: Yes (Other)
  Sender: FDA-Public Use
  Company Number: US-BOEHRINGER INGELHEIM GMBH, GERMANY-2008-BP-04773RO

PATIENT
  Sex: Female
  Weight: 87 kg

DRUGS (5)
  1. PREDNISONE [Suspect]
     Indication: CONNECTIVE TISSUE DISORDER
     Route: 048
     Dates: start: 20070711, end: 20071001
  2. PREDNISONE [Suspect]
     Dates: start: 20070601, end: 20070601
  3. METHOTREXATE [Suspect]
     Indication: CONNECTIVE TISSUE DISORDER
     Dates: start: 20070716, end: 20070813
  4. PROMETRIUM [Suspect]
     Indication: HORMONE REPLACEMENT THERAPY
     Route: 048
     Dates: start: 20000101
  5. ESTRADIOL [Suspect]
     Indication: HORMONE REPLACEMENT THERAPY
     Route: 048
     Dates: start: 20000101

REACTIONS (2)
  - ALOPECIA [None]
  - NASOPHARYNGITIS [None]
